FAERS Safety Report 15196943 (Version 1)
Quarter: 2018Q3

REPORT INFORMATION
  Report Type: Report from Study
  Country: BR (occurrence: BR)
  Receive Date: 20180725
  Receipt Date: 20180725
  Transmission Date: 20181010
  Serious: Yes (Hospitalization, Other)
  Sender: FDA-Public Use
  Company Number: PHHY2018BR047337

PATIENT
  Age: 89 Year
  Sex: Female
  Weight: 50 kg

DRUGS (16)
  1. DONEPEZIL. [Concomitant]
     Active Substance: DONEPEZIL
     Indication: DEMENTIA ALZHEIMER^S TYPE
     Dosage: 1 DF, QD (STARTED 5 YEARS AGO)
     Route: 048
  2. CALCITRIOL. [Suspect]
     Active Substance: CALCITRIOL
     Indication: PRODUCT USED FOR UNKNOWN INDICATION
     Dosage: UNK
     Route: 065
     Dates: end: 201805
  3. LOSARTAN. [Concomitant]
     Active Substance: LOSARTAN
     Indication: HYPERTENSION
     Dosage: 1 DF, QD (SARTED 5 YEARS AGO)
     Route: 048
  4. TRAZODONE [Concomitant]
     Active Substance: TRAZODONE HYDROCHLORIDE
     Indication: DEPRESSION
     Dosage: 1 DF, QD (STARTED 5 YEARS AGO)
     Route: 048
  5. VITACAL [Concomitant]
     Indication: OSTEOPOROSIS
     Dosage: 1 DF, QD (STARTED 4 YEARS AGO)
     Route: 048
  6. NPH INSULIN [Concomitant]
     Active Substance: INSULIN BEEF
     Indication: DIABETES MELLITUS
     Dosage: 8 IU IN MORNING, 3 IU IN EVENING (STARTED 2 MONTHS AGO)
     Route: 058
  7. DIGOXIN. [Concomitant]
     Active Substance: DIGOXIN
     Indication: CARDIAC DISORDER
     Dosage: 1 DF, QOD (STRATED 5 YEARS AGO)
     Route: 048
  8. ACLASTA [Suspect]
     Active Substance: ZOLEDRONIC ACID
     Indication: OSTEOPOROSIS
     Dosage: UNK, Q12MO
     Route: 042
  9. PAROXETINE. [Concomitant]
     Active Substance: PAROXETINE
     Indication: DEPRESSION
     Dosage: 1 DF, QD (STARTED 4 YEARS AGO)
     Route: 048
  10. QUETIAPINE. [Concomitant]
     Active Substance: QUETIAPINE
     Indication: INSOMNIA
     Dosage: 1 DF, QHS (STARTED 5 YEARS AGO)
     Route: 048
  11. CARDBET [Concomitant]
     Indication: CARDIAC DISORDER
     Dosage: 2 DF, QD (STARTED 2 YEARS AGO)
     Route: 048
  12. FUROSEMIDE. [Concomitant]
     Active Substance: FUROSEMIDE
     Indication: HYPERTENSION
     Dosage: 1 DF, QD (STARTED 5 YAERS AGO)
     Route: 048
  13. FLAVENOS [Concomitant]
     Indication: PERIPHERAL VASCULAR DISORDER
     Dosage: 1 DF, QD (STARTED 5 YEARS AGO)
     Route: 048
  14. ACLASTA [Suspect]
     Active Substance: ZOLEDRONIC ACID
     Dosage: 1 DF (1 AMPOULE), Q12MO
     Route: 042
     Dates: start: 20170505
  15. FERROUS SULFATE. [Suspect]
     Active Substance: FERROUS SULFATE
     Indication: ANAEMIA
     Route: 065
  16. TRAYENTA [Concomitant]
     Active Substance: LINAGLIPTIN
     Indication: DIABETES MELLITUS
     Dosage: 2 DF, QD
     Route: 048
     Dates: start: 201707

REACTIONS (7)
  - Renal impairment [Not Recovered/Not Resolved]
  - Urinary tract infection [Recovering/Resolving]
  - Anaemia [Recovering/Resolving]
  - Gastrointestinal infection [Recovering/Resolving]
  - Malaise [Recovering/Resolving]
  - Kidney infection [Recovering/Resolving]
  - Influenza [Recovering/Resolving]

NARRATIVE: CASE EVENT DATE: 201706
